FAERS Safety Report 8785246 (Version 1)
Quarter: 2012Q4

REPORT INFORMATION
  Report Type: Spontaneous
  Country: DE (occurrence: None)
  Receive Date: 20120831
  Receipt Date: 20120831
  Transmission Date: 20130627
  Serious: Yes (Other)
  Sender: FDA-Public Use
  Company Number: AUR-APL-2012-03683

PATIENT
  Age: 36 Year
  Sex: Male

DRUGS (4)
  1. ZIDOVUDINE [Suspect]
     Indication: HIV INFECTION
  2. NELFINAVIR MESILATE [Suspect]
     Indication: HIV INFECTION
  3. LAMIVUDINE [Suspect]
     Indication: HIV INFECTION
  4. ABACAVIR [Suspect]
     Indication: HIV INFECTION

REACTIONS (9)
  - Major depression [None]
  - Treatment noncompliance [None]
  - Anhedonia [None]
  - Suicidal ideation [None]
  - Fatigue [None]
  - Disturbance in attention [None]
  - Social avoidant behaviour [None]
  - Sleep disorder [None]
  - AIDS related complication [None]
